FAERS Safety Report 15891206 (Version 1)
Quarter: 2019Q1

REPORT INFORMATION
  Report Type: Spontaneous
  Country: ES (occurrence: ES)
  Receive Date: 20190130
  Receipt Date: 20190130
  Transmission Date: 20190417
  Serious: Yes (Hospitalization)
  Sender: FDA-Public Use
  Company Number: ES-MYLANLABS-2019M1007934

PATIENT
  Sex: Female
  Weight: 80 kg

DRUGS (1)
  1. TRAMADOL. [Suspect]
     Active Substance: TRAMADOL
     Indication: ARTHRALGIA
     Dosage: 50 MILLIGRAM, Q8H
     Route: 048
     Dates: start: 20180601, end: 20180712

REACTIONS (4)
  - Hallucination [Recovering/Resolving]
  - Confusional state [Recovering/Resolving]
  - Aggression [Recovering/Resolving]
  - Abnormal dreams [Recovering/Resolving]

NARRATIVE: CASE EVENT DATE: 20180608
